FAERS Safety Report 9023535 (Version 1)
Quarter: 2013Q1

REPORT INFORMATION
  Report Type: Spontaneous
  Country: FR (occurrence: FR)
  Receive Date: 20130121
  Receipt Date: 20130121
  Transmission Date: 20140127
  Serious: Yes (Life-Threatening)
  Sender: FDA-Public Use
  Company Number: PHHY2013FR005076

PATIENT
  Age: 30 Year
  Sex: Male

DRUGS (2)
  1. CERTICAN [Suspect]
     Dosage: UNK UKN, UNK
     Route: 048
     Dates: start: 1992
  2. FUROSEMIDE [Concomitant]
     Dosage: UNK UKN, UNK

REACTIONS (1)
  - Renal failure chronic [Recovering/Resolving]
